FAERS Safety Report 12644165 (Version 2)
Quarter: 2016Q3

REPORT INFORMATION
  Report Type: Spontaneous
  Country: US (occurrence: US)
  Receive Date: 20160811
  Receipt Date: 20160912
  Transmission Date: 20161109
  Serious: Yes (Other)
  Sender: FDA-Public Use
  Company Number: US-GLAXOSMITHKLINE-US2016113672

PATIENT
  Sex: Female

DRUGS (5)
  1. RANITIDINE. [Concomitant]
     Active Substance: RANITIDINE
  2. VITAMIN C [Concomitant]
     Active Substance: ASCORBIC ACID
  3. LISINOPRIL. [Concomitant]
     Active Substance: LISINOPRIL
  4. FLOVENT HFA [Suspect]
     Active Substance: FLUTICASONE PROPIONATE
     Indication: ASTHMA
     Dosage: 2 PUFF(S), BID
     Route: 055
     Dates: start: 2008
  5. NEXIUM [Concomitant]
     Active Substance: ESOMEPRAZOLE MAGNESIUM

REACTIONS (4)
  - Throat irritation [Recovered/Resolved]
  - Cough [Recovered/Resolved]
  - Product quality issue [Unknown]
  - Cataract operation [Recovered/Resolved]

NARRATIVE: CASE EVENT DATE: 2014
